FAERS Safety Report 8624446-0 (Version None)
Quarter: 2012Q3

REPORT INFORMATION
  Report Type: 
  Country: None (occurrence: None)
  Receive Date: 20120827
  Receipt Date: 20120817
  Transmission Date: 20120928
  Serious: Yes (Hospitalization)
  Sender: FDA-Public Use
  Company Number: JP-PFIZER INC-2012150503

PATIENT
  Age: 81 Year
  Sex: Male

DRUGS (11)
  1. ESTRACYT [Suspect]
     Indication: PROSTATE CANCER
     Dosage: UNK
     Route: 048
     Dates: start: 20110314, end: 20110412
  2. ESTRACYT [Suspect]
     Dosage: 156.7 MG, 1X/DAY
     Route: 048
     Dates: start: 20110630, end: 20110728
  3. WARFARIN [Concomitant]
     Dosage: UNK
     Dates: start: 20110418
  4. WARFARIN [Concomitant]
     Dosage: UNK
     Dates: start: 20110820
  5. PRAVASTATIN SODIUM [Concomitant]
     Dosage: UNK
  6. NITRODERM [Concomitant]
     Dosage: UNK
  7. ISOSORBIDE MONONITRATE [Concomitant]
     Dosage: UNK
  8. ASPIRIN [Concomitant]
     Dosage: UNK
  9. ESTRACYT [Suspect]
     Dosage: 313.4 MG, 1X/DAY
     Route: 048
     Dates: start: 20110729, end: 20110818
  10. WARFARIN [Concomitant]
     Dosage: UNK
  11. LOSARTAN POTASSIUM [Concomitant]
     Dosage: UNK

REACTIONS (3)
  - INTERSTITIAL LUNG DISEASE [None]
  - CARDIAC FAILURE CONGESTIVE [None]
  - COAGULATION TIME PROLONGED [None]
